FAERS Safety Report 17962058 (Version 1)
Quarter: 2020Q2

REPORT INFORMATION
  Report Type: Spontaneous
  Country: US (occurrence: US)
  Receive Date: 20200629
  Receipt Date: 20200629
  Transmission Date: 20200714
  Serious: Yes (Hospitalization)
  Sender: FDA-Public Use
  Company Number: None

PATIENT
  Age: 46 Year
  Sex: Male

DRUGS (1)
  1. QUETIAPINE (QUETIAPINE FUMARATE 200MG TAB) [Suspect]
     Active Substance: QUETIAPINE FUMARATE
     Indication: BIPOLAR I DISORDER
     Dates: start: 20191022, end: 20191025

REACTIONS (6)
  - Dysarthria [None]
  - Hypotension [None]
  - Somnolence [None]
  - Dystonia [None]
  - Tachycardia [None]
  - Dry mouth [None]

NARRATIVE: CASE EVENT DATE: 20191022
